FAERS Safety Report 4684522-4 (Version None)
Quarter: 2005Q2

REPORT INFORMATION
  Report Type: 
  Country: None (occurrence: None)
  Receive Date: 20050603
  Receipt Date: 20050520
  Transmission Date: 20051028
  Serious: Yes (Disabling)
  Sender: FDA-Public Use
  Company Number: 2005080862

PATIENT
  Age: 34 Year
  Sex: Female

DRUGS (2)
  1. SERTRALINE HCL [Suspect]
     Indication: DEPRESSION
  2. LITHIUM [Concomitant]

REACTIONS (7)
  - ANXIETY [None]
  - APATHY [None]
  - DEPRESSION [None]
  - IRRITABILITY [None]
  - MANIA [None]
  - MIDDLE INSOMNIA [None]
  - SOCIAL AVOIDANT BEHAVIOUR [None]
